FAERS Safety Report 10440987 (Version 1)
Quarter: 2014Q3

REPORT INFORMATION
  Report Type: Spontaneous
  Country: US (occurrence: None)
  Receive Date: 20140908
  Receipt Date: 20140908
  Transmission Date: 20150326
  Serious: Yes (Disabling, Other)
  Sender: FDA-Public Use
  Company Number: None

PATIENT
  Age: 45 Year
  Sex: Female
  Weight: 54.43 kg

DRUGS (1)
  1. ARESTIN [Suspect]
     Active Substance: MINOCYCLINE HYDROCHLORIDE
     Indication: DENTAL CLEANING
     Dates: start: 20140821, end: 20140907

REACTIONS (3)
  - Discomfort [None]
  - Oral candidiasis [None]
  - Stomatitis [None]

NARRATIVE: CASE EVENT DATE: 20140821
